FAERS Safety Report 6837503-6 (Version None)
Quarter: 2010Q3

REPORT INFORMATION
  Report Type: 
  Country: None (occurrence: None)
  Receive Date: 20100713
  Receipt Date: 20070514
  Transmission Date: 20110219
  Serious: No
  Sender: FDA-Public Use
  Company Number: US-PFIZER INC-2007040041

PATIENT
  Sex: Female
  Weight: 75.9 kg

DRUGS (3)
  1. CHANTIX [Suspect]
     Indication: SMOKING CESSATION THERAPY
     Dates: start: 20070221
  2. NEXIUM [Concomitant]
  3. PREVACID [Concomitant]

REACTIONS (4)
  - ACIDOSIS [None]
  - AMNESIA [None]
  - HEADACHE [None]
  - LYMPHADENOPATHY [None]
